FAERS Safety Report 20073933 (Version 1)
Quarter: 2021Q4

REPORT INFORMATION
  Report Type: Report from Study
  Country: IT (occurrence: IT)
  Receive Date: 20211116
  Receipt Date: 20211116
  Transmission Date: 20220304
  Serious: Yes (Other)
  Sender: FDA-Public Use
  Company Number: None

PATIENT
  Age: 38 Year
  Sex: Female

DRUGS (3)
  1. QUETIAPINE [Suspect]
     Active Substance: QUETIAPINE
     Indication: Product used for unknown indication
     Dosage: 30 DOSAGE FORM, TOTAL
     Route: 048
     Dates: start: 20201219, end: 20201219
  2. OLANZAPINE [Concomitant]
     Active Substance: OLANZAPINE
     Dosage: UNK
  3. RISPERDAL [Concomitant]
     Active Substance: RISPERIDONE
     Dosage: UNK

REACTIONS (2)
  - Vomiting [Recovering/Resolving]
  - Drug abuse [Recovering/Resolving]

NARRATIVE: CASE EVENT DATE: 20201219
